FAERS Safety Report 16350395 (Version 1)
Quarter: 2019Q2

REPORT INFORMATION
  Report Type: Spontaneous
  Country: TR (occurrence: TR)
  Receive Date: 20190524
  Receipt Date: 20190524
  Transmission Date: 20190711
  Serious: Yes (Life-Threatening, Hospitalization)
  Sender: FDA-Public Use
  Company Number: TR-TEVA-2019-TR-1052978

PATIENT
  Age: 30 Year
  Sex: Female

DRUGS (2)
  1. CISPLATIN. [Concomitant]
     Active Substance: CISPLATIN
     Indication: OSTEOSARCOMA
     Dosage: 100 MG/M2 DAILY; RECEIVED CISPLATIN ON FIRST DAY OF CHEMOTHERAPY
     Route: 065
  2. ADRIAMYCIN [Suspect]
     Active Substance: DOXORUBICIN HYDROCHLORIDE
     Indication: OSTEOSARCOMA
     Dosage: 25 MG/M2 DAILY; THE WOMAN RECEIVED DOXORUBICIN ON DAYS 1-3
     Route: 065

REACTIONS (1)
  - Cardiac failure acute [Recovering/Resolving]
